FAERS Safety Report 8203294-X (Version None)
Quarter: 2012Q1

REPORT INFORMATION
  Report Type: 
  Country: None (occurrence: None)
  Receive Date: 20120312
  Receipt Date: 20120103
  Transmission Date: 20120608
  Serious: Yes (Hospitalization)
  Sender: FDA-Public Use
  Company Number: US-ROCHE-GNE311654

PATIENT
  Sex: Female
  Weight: 72.6 kg

DRUGS (31)
  1. LEVOTHYROXINE SODIUM [Concomitant]
     Indication: PRODUCT USED FOR UNKNOWN INDICATION
  2. ASPIRIN [Concomitant]
     Indication: PRODUCT USED FOR UNKNOWN INDICATION
  3. LEVOTHYROXINE SODIUM [Concomitant]
  4. FUROSEMIDE [Concomitant]
  5. METOLAZONE [Concomitant]
  6. AZOPT [Concomitant]
  7. RAMIPRIL [Concomitant]
     Indication: PRODUCT USED FOR UNKNOWN INDICATION
  8. ALTACE [Concomitant]
  9. AMBIEN [Concomitant]
  10. ALLEGRA [Concomitant]
  11. ASCORBIC ACID [Concomitant]
  12. SPIRONOLACTONE [Concomitant]
     Indication: PRODUCT USED FOR UNKNOWN INDICATION
  13. PANTOPRAZOLE [Concomitant]
     Indication: PRODUCT USED FOR UNKNOWN INDICATION
  14. PRAVASTATIN [Concomitant]
     Indication: PRODUCT USED FOR UNKNOWN INDICATION
  15. ACCOLATE [Concomitant]
  16. LEXAPRO [Concomitant]
  17. ADVAIR DISKUS 100/50 [Concomitant]
  18. IMODIUM [Concomitant]
  19. ALPHAGAN [Concomitant]
  20. PRAVASTATIN [Concomitant]
  21. POTASSIUM [Concomitant]
     Indication: PRODUCT USED FOR UNKNOWN INDICATION
  22. PROTONIX [Concomitant]
  23. RANIBIZUMAB [Suspect]
     Indication: AGE-RELATED MACULAR DEGENERATION
     Dosage: ON 19 OCTOBER 2011, THE PATIENT RECEIVED THE LAST DOSE OF RANIBIZUMAB
     Route: 050
     Dates: start: 20100602, end: 20111019
  24. ZOLPIDEM TARTRATE [Concomitant]
     Indication: PRODUCT USED FOR UNKNOWN INDICATION
  25. EYE DROP (UNK INGREDIENTS) [Concomitant]
     Indication: PRODUCT USED FOR UNKNOWN INDICATION
  26. ACETAMINOPHEN [Concomitant]
  27. KLOR-CON [Concomitant]
  28. ASPIRIN [Concomitant]
  29. TRAVATAN [Concomitant]
  30. ZAROXOLYN [Concomitant]
  31. PLAVIX [Concomitant]
     Indication: PRODUCT USED FOR UNKNOWN INDICATION

REACTIONS (4)
  - SEPSIS [None]
  - CARDIAC FAILURE CONGESTIVE [None]
  - URINARY TRACT INFECTION [None]
  - GASTROINTESTINAL HAEMORRHAGE [None]
